FAERS Safety Report 17104863 (Version 1)
Quarter: 2019Q4

REPORT INFORMATION
  Report Type: Spontaneous
  Country: US (occurrence: US)
  Receive Date: 20191108
  Receipt Date: 20191108
  Transmission Date: 20200122
  Serious: Yes (Hospitalization)
  Sender: FDA-Public Use
  Company Number: None

PATIENT
  Age: 42 Year
  Sex: Male

DRUGS (1)
  1. HUMIRA [Suspect]
     Active Substance: ADALIMUMAB
     Dosage: ?          OTHER FREQUENCY:1 X WK;  40 MG/0.8 ML?
     Route: 058

REACTIONS (2)
  - Therapy cessation [None]
  - Skin operation [None]

NARRATIVE: CASE EVENT DATE: 20190828
